FAERS Safety Report 18956947 (Version 1)
Quarter: 2021Q1

REPORT INFORMATION
  Report Type: Spontaneous
  Country: US (occurrence: US)
  Receive Date: 20210302
  Receipt Date: 20210302
  Transmission Date: 20210420
  Serious: Yes (Other)
  Sender: FDA-Public Use
  Company Number: US-SUN PHARMACEUTICAL INDUSTRIES LTD-2021R1-282476

PATIENT
  Age: 49 Year
  Sex: Male

DRUGS (6)
  1. ASPIRIN. [Concomitant]
     Active Substance: ASPIRIN
     Indication: ACUTE MYOCARDIAL INFARCTION
     Route: 065
  2. ASPIRIN. [Concomitant]
     Active Substance: ASPIRIN
     Indication: DIETHYLSTILBOESTROL SYNDROME
  3. ATORVASTATIN [Suspect]
     Active Substance: ATORVASTATIN
     Indication: ACUTE MYOCARDIAL INFARCTION
     Dosage: UNK
     Route: 065
  4. TICAGRETOL [Concomitant]
     Indication: ACUTE MYOCARDIAL INFARCTION
     Route: 065
  5. TICAGRETOL [Concomitant]
     Indication: DIETHYLSTILBOESTROL SYNDROME
  6. ATORVASTATIN [Suspect]
     Active Substance: ATORVASTATIN
     Indication: DIETHYLSTILBOESTROL SYNDROME

REACTIONS (3)
  - Thyroid function test abnormal [Recovering/Resolving]
  - Blood creatine phosphokinase increased [Recovered/Resolved]
  - Myalgia [Recovered/Resolved]
